FAERS Safety Report 5594173-5 (Version None)
Quarter: 2008Q1

REPORT INFORMATION
  Report Type: 
  Country: None (occurrence: None)
  Receive Date: 20080109
  Receipt Date: 20071226
  Transmission Date: 20080703
  Serious: Yes (Hospitalization)
  Sender: FDA-Public Use
  Company Number: WSDF_00696

PATIENT
  Age: 23 Year
  Sex: Female
  Weight: 60.782 kg

DRUGS (2)
  1. WINRHO SDF [Suspect]
     Indication: IDIOPATHIC THROMBOCYTOPENIC PURPURA
     Dosage: 52.5 UG/KG ONCE
     Dates: start: 20071206, end: 20071206
  2. DECADRON [Concomitant]

REACTIONS (4)
  - DIZZINESS [None]
  - HAEMOGLOBIN DECREASED [None]
  - HEADACHE [None]
  - SINUSITIS [None]
